FAERS Safety Report 4927360-7 (Version None)
Quarter: 2006Q1

REPORT INFORMATION
  Report Type: 
  Country: None (occurrence: None)
  Receive Date: 20060228
  Receipt Date: 20050921
  Transmission Date: 20060701
  Serious: No
  Sender: FDA-Public Use
  Company Number: US-GLAXOSMITHKLINE-A0575246A

PATIENT
  Age: 50 Year
  Sex: Female

DRUGS (4)
  1. IMITREX [Suspect]
     Indication: MIGRAINE
     Dosage: 100MG AS REQUIRED
     Route: 048
     Dates: start: 20050913, end: 20050913
  2. ESTRACE [Concomitant]
  3. PROTONIX [Concomitant]
  4. ZYRTEC [Concomitant]

REACTIONS (2)
  - DYSPNOEA [None]
  - FEELING JITTERY [None]
